FAERS Safety Report 7340426-X (Version None)
Quarter: 2011Q1

REPORT INFORMATION
  Report Type: 
  Country: None (occurrence: None)
  Receive Date: 20110309
  Receipt Date: 20110207
  Transmission Date: 20110831
  Serious: Yes (Hospitalization, Other)
  Sender: FDA-Public Use
  Company Number: US-BAYER-201010052NA

PATIENT
  Sex: Female
  Weight: 70 kg

DRUGS (7)
  1. AZOR [Concomitant]
     Indication: HYPERTENSION
  2. NORVASC [Concomitant]
  3. MERIDIA [Concomitant]
     Indication: WEIGHT DECREASED
  4. UNCODEABLE ^UNCLASSIFIABLE^ [Concomitant]
     Dosage: UNK
     Dates: start: 20080801, end: 20081101
  5. ASPIRIN [Concomitant]
     Dosage: UNK
     Dates: start: 20080801, end: 20081101
  6. YAZ [Suspect]
     Indication: PRODUCT USED FOR UNKNOWN INDICATION
     Route: 048
  7. YASMIN [Suspect]
     Indication: PRODUCT USED FOR UNKNOWN INDICATION
     Route: 048

REACTIONS (18)
  - DYSARTHRIA [None]
  - CAROTID ARTERY DISSECTION [None]
  - PHOTOPSIA [None]
  - HYPOAESTHESIA [None]
  - MIGRAINE [None]
  - HORNER'S SYNDROME [None]
  - EYE PAIN [None]
  - MIOSIS [None]
  - EYELID PTOSIS [None]
  - HEMIPARESIS [None]
  - PAIN IN JAW [None]
  - HEADACHE [None]
  - VISUAL FIELD DEFECT [None]
  - CEREBRAL INFARCTION [None]
  - TRANSIENT ISCHAEMIC ATTACK [None]
  - CEREBROVASCULAR ACCIDENT [None]
  - THROMBOSIS [None]
  - FACIAL PARESIS [None]
